FAERS Safety Report 5055763-1 (Version None)
Quarter: 2006Q3

REPORT INFORMATION
  Report Type: 
  Country: None (occurrence: None)
  Receive Date: 20060714
  Receipt Date: 20060630
  Transmission Date: 20061208
  Serious: Yes (Other)
  Sender: FDA-Public Use
  Company Number: 0601756US

PATIENT
  Age: 24 Year
  Sex: Female

DRUGS (1)
  1. TAZORAC [Suspect]
     Indication: DRUG USE FOR UNKNOWN INDICATION
     Dosage: UNK, QD, TOPICAL
     Route: 061
     Dates: start: 20060413, end: 20060608

REACTIONS (6)
  - ABORTION SPONTANEOUS [None]
  - BLOOD HUMAN CHORIONIC GONADOTROPIN INCREASED [None]
  - COMPLICATION OF PREGNANCY [None]
  - DRUG EXPOSURE BEFORE PREGNANCY [None]
  - DRUG EXPOSURE DURING PREGNANCY [None]
  - ULTRASOUND SCAN ABNORMAL [None]
